FAERS Safety Report 8133754-1 (Version None)
Quarter: 2012Q1

REPORT INFORMATION
  Report Type: 
  Country: None (occurrence: None)
  Receive Date: 20120213
  Receipt Date: 20120213
  Transmission Date: 20120608
  Serious: Yes (Disabling)
  Sender: FDA-Public Use
  Company Number: None

PATIENT
  Age: 84 Year
  Sex: Female
  Weight: 56.7 kg

DRUGS (2)
  1. HEPARIN SODIUM [Suspect]
     Indication: CORONARY ARTERY BYPASS
     Dosage: 5000 UNITS
     Route: 040
     Dates: start: 20120210, end: 20120210
  2. HEPARIN SODIUM [Concomitant]
     Dosage: UNKNOWN
     Route: 042

REACTIONS (1)
  - COAGULOPATHY [None]
